FAERS Safety Report 17855965 (Version 4)
Quarter: 2021Q4

REPORT INFORMATION
  Report Type: Spontaneous
  Country: PR (occurrence: PR)
  Receive Date: 20200603
  Receipt Date: 20211215
  Transmission Date: 20220303
  Serious: No
  Sender: FDA-Public Use
  Company Number: PR-PFIZER INC-2020213989

PATIENT
  Age: 9 Year
  Sex: Male

DRUGS (1)
  1. GENOTROPIN [Suspect]
     Active Substance: SOMATROPIN
     Indication: Noonan syndrome
     Dosage: 1.2 MG, DAILY (SKIP WEDNESDAYS) (FOR 6 DAYS AND OFF 1 DAY)
     Dates: start: 20200507

REACTIONS (5)
  - Device leakage [Unknown]
  - Device operational issue [Unknown]
  - Device use error [Unknown]
  - Product dose omission issue [Not Recovered/Not Resolved]
  - Product packaging issue [Unknown]

NARRATIVE: CASE EVENT DATE: 20210401
